FAERS Safety Report 18302135 (Version 1)
Quarter: 2020Q3

REPORT INFORMATION
  Report Type: Other
  Country: CA (occurrence: CA)
  Receive Date: 20200923
  Receipt Date: 20200923
  Transmission Date: 20201103
  Serious: Yes (Other)
  Sender: FDA-Public Use
  Company Number: CA-CELLTRION INC.-2020CA026320

PATIENT

DRUGS (13)
  1. APIXABAN [Concomitant]
     Active Substance: APIXABAN
  2. SULFASALAZINE. [Concomitant]
     Active Substance: SULFASALAZINE
  3. ACETAMINOPHEN. [Concomitant]
     Active Substance: ACETAMINOPHEN
     Indication: PREMEDICATION
     Dosage: 650.0 MILLIGRAM
     Route: 048
  4. METHYLPREDNISOLONE. [Concomitant]
     Active Substance: METHYLPREDNISOLONE
     Indication: PREMEDICATION
     Dosage: 100.0 MILLIGRAM
     Route: 042
  5. PREDNISONE. [Concomitant]
     Active Substance: PREDNISONE
  6. ALENDRONATE SODIUM. [Concomitant]
     Active Substance: ALENDRONATE SODIUM
  7. CALCIUM [Concomitant]
     Active Substance: CALCIUM
  8. DIPHENHYDRAMINE HYDROCHLORIDE. [Concomitant]
     Active Substance: DIPHENHYDRAMINE HYDROCHLORIDE
     Indication: PREMEDICATION
     Dosage: 50.0 MILLIGRAM
     Route: 048
  9. RITUXIMAB (UNKNOWN) [Suspect]
     Active Substance: RITUXIMAB
     Indication: RHEUMATOID ARTHRITIS
     Dosage: 1000.0 MILLIGRAM
     Route: 042
  10. FOLIC ACID. [Concomitant]
     Active Substance: FOLIC ACID
  11. LAMIVUDINE. [Concomitant]
     Active Substance: LAMIVUDINE
  12. HYDROXYCHLOROQUINE SULFATE. [Concomitant]
     Active Substance: HYDROXYCHLOROQUINE SULFATE
  13. METHOTREXATE. [Concomitant]
     Active Substance: METHOTREXATE

REACTIONS (6)
  - Vasculitis [Recovered/Resolved]
  - Cellulitis [Recovered/Resolved]
  - Weight decreased [Recovered/Resolved]
  - Oedema peripheral [Recovered/Resolved]
  - Ulcer [Recovered/Resolved]
  - Vein disorder [Recovered/Resolved]
